FAERS Safety Report 7250455-2 (Version None)
Quarter: 2011Q1

REPORT INFORMATION
  Report Type: 
  Country: None (occurrence: None)
  Receive Date: 20110119
  Receipt Date: 20110106
  Transmission Date: 20110831
  Serious: Yes (Hospitalization)
  Sender: FDA-Public Use
  Company Number: DSJ-2011-00380

PATIENT
  Age: 66 Year
  Sex: Female

DRUGS (5)
  1. METHYLDOPA [Concomitant]
  2. BENICAR [Suspect]
     Indication: HYPERTENSION
     Dosage: (20 MG (20 MG, 1 IN 1 D), PER ORAL) (40 MG (40 MG, 1 IN 1 D), PER ORAL)
     Route: 048
     Dates: start: 20101105
  3. BENICAR [Suspect]
     Indication: HYPERTENSION
     Dosage: (20 MG (20 MG, 1 IN 1 D), PER ORAL) (40 MG (40 MG, 1 IN 1 D), PER ORAL)
     Route: 048
     Dates: start: 20100501, end: 20101105
  4. HYDRALAZINE (HYDRALAZINE) (HYDRALAZINE) [Concomitant]
  5. METFORMIN HCL [Concomitant]

REACTIONS (4)
  - BLOOD PRESSURE SYSTOLIC INCREASED [None]
  - ANGINA PECTORIS [None]
  - DRUG INEFFECTIVE [None]
  - CATHETER PLACEMENT [None]
